FAERS Safety Report 19952668 (Version 1)
Quarter: 2021Q4

REPORT INFORMATION
  Report Type: Spontaneous
  Country: US (occurrence: US)
  Receive Date: 20211014
  Receipt Date: 20211014
  Transmission Date: 20220303
  Serious: Yes (Other)
  Sender: FDA-Public Use
  Company Number: US-UNITED THERAPEUTICS-UNT-2021-017756

PATIENT
  Age: 58 Year
  Sex: Female
  Weight: 78.91 kg

DRUGS (3)
  1. REMODULIN [Suspect]
     Active Substance: TREPROSTINIL
     Indication: Pulmonary arterial hypertension
     Dosage: UNK UNK, CONTINUING
     Route: 058
     Dates: start: 20210830
  2. REMODULIN [Suspect]
     Active Substance: TREPROSTINIL
     Dosage: 0.010 ?G/KG, CONTINUING
     Route: 058
     Dates: start: 2021
  3. REMODULIN [Suspect]
     Active Substance: TREPROSTINIL
     Dosage: 0.017 ?G/KG, CONTINUING
     Route: 058
     Dates: start: 2021

REACTIONS (23)
  - Barrett^s oesophagus [Unknown]
  - Neuropathy peripheral [Unknown]
  - Headache [Unknown]
  - Constipation [Unknown]
  - Infusion site pain [Not Recovered/Not Resolved]
  - Dermatitis contact [Unknown]
  - Bowel movement irregularity [Unknown]
  - Fluid retention [Unknown]
  - Swelling face [Unknown]
  - Breast mass [Unknown]
  - Infusion site discomfort [Unknown]
  - Malaise [Unknown]
  - Insomnia [Unknown]
  - Productive cough [Unknown]
  - Pyrexia [Unknown]
  - Dizziness exertional [Unknown]
  - Dizziness [Unknown]
  - Pallor [Unknown]
  - Hyperhidrosis [Unknown]
  - Muscular weakness [Unknown]
  - Diarrhoea [Unknown]
  - Unintentional medical device removal [Recovered/Resolved]
  - Device use issue [Unknown]

NARRATIVE: CASE EVENT DATE: 20210101
